FAERS Safety Report 5033283-8 (Version None)
Quarter: 2006Q2

REPORT INFORMATION
  Report Type: 
  Country: None (occurrence: None)
  Receive Date: 20060623
  Receipt Date: 20060620
  Transmission Date: 20061013
  Serious: Yes (Death)
  Sender: FDA-Public Use
  Company Number: PHNU2006DE02313

PATIENT
  Sex: Female

DRUGS (1)
  1. LOCOL [Suspect]
     Dosage: 200 DF, ONCE/SINGLE
     Route: 048

REACTIONS (2)
  - COMPLETED SUICIDE [None]
  - OVERDOSE [None]
